FAERS Safety Report 19413440 (Version 2)
Quarter: 2021Q3

REPORT INFORMATION
  Report Type: Report from Study
  Country: CA (occurrence: CA)
  Receive Date: 20210614
  Receipt Date: 20210714
  Transmission Date: 20211014
  Serious: Yes (Hospitalization, Other)
  Sender: FDA-Public Use
  Company Number: CA-SAMSUNG BIOEPIS-SB-2020-21820

PATIENT
  Age: 44 Year
  Sex: Male
  Weight: 93 kg

DRUGS (2)
  1. RENFLEXIS [Suspect]
     Active Substance: INFLIXIMAB-ABDA
     Indication: COLITIS ULCERATIVE
     Dosage: VIAL
     Route: 042
     Dates: start: 20200514, end: 20210412
  2. RENFLEXIS [Suspect]
     Active Substance: INFLIXIMAB-ABDA
     Dosage: VIALS
     Route: 042

REACTIONS (10)
  - Pruritus [Unknown]
  - Incorrect drug administration rate [Unknown]
  - Skin ulcer [Not Recovered/Not Resolved]
  - Constipation [Unknown]
  - Rash erythematous [Unknown]
  - Rash [Recovering/Resolving]
  - Product use issue [Unknown]
  - Asthma [Unknown]
  - Colitis ulcerative [Unknown]
  - Rash pruritic [Unknown]
